FAERS Safety Report 5638889-0 (Version None)
Quarter: 2008Q1

REPORT INFORMATION
  Report Type: 
  Country: None (occurrence: None)
  Receive Date: 20080226
  Receipt Date: 20080215
  Transmission Date: 20080703
  Serious: Yes (Hospitalization)
  Sender: FDA-Public Use
  Company Number: FR-ROCHE-548126

PATIENT
  Age: 43 Year
  Sex: Female

DRUGS (5)
  1. PEGASYS [Suspect]
     Indication: HEPATITIS C
     Route: 065
  2. NEORECORMON [Suspect]
     Indication: DRUG USE FOR UNKNOWN INDICATION
     Route: 065
  3. KALETRA [Concomitant]
  4. INVIRASE [Concomitant]
  5. REBETOL [Concomitant]

REACTIONS (2)
  - HEADACHE [None]
  - VISUAL FIELD DEFECT [None]
